FAERS Safety Report 10256242 (Version 1)
Quarter: 2014Q2

REPORT INFORMATION
  Report Type: Spontaneous
  Country: US (occurrence: US)
  Receive Date: 20140624
  Receipt Date: 20140624
  Transmission Date: 20141212
  Serious: Yes (Other)
  Sender: FDA-Public Use
  Company Number: US-ACTAVIS-2014-14100

PATIENT
  Age: 61 Year
  Sex: Male

DRUGS (6)
  1. VANCOMYCIN HCL (WATSON LABORATORIES) [Suspect]
     Indication: POSTOPERATIVE WOUND INFECTION
     Dosage: 1.75 G, BID
     Route: 042
  2. VANCOMYCIN HCL (WATSON LABORATORIES) [Suspect]
     Indication: STAPHYLOCOCCAL INFECTION
  3. DILTIAZEM [Concomitant]
     Indication: PRODUCT USED FOR UNKNOWN INDICATION
     Dosage: UNK
     Route: 065
  4. ALLOPURINOL [Concomitant]
     Indication: PRODUCT USED FOR UNKNOWN INDICATION
     Dosage: UNK
     Route: 065
  5. METOPROLOL [Concomitant]
     Indication: PRODUCT USED FOR UNKNOWN INDICATION
     Dosage: UNK
     Route: 065
  6. TRAZODONE [Concomitant]
     Indication: PRODUCT USED FOR UNKNOWN INDICATION
     Dosage: UNK
     Route: 065

REACTIONS (2)
  - Tubulointerstitial nephritis [Recovering/Resolving]
  - IgA nephropathy [Recovering/Resolving]
